FAERS Safety Report 8392579 (Version 3)
Quarter: 2019Q3

REPORT INFORMATION
  Report Type: Report from Study
  Country: HU (occurrence: HU)
  Receive Date: 20120206
  Receipt Date: 20190724
  Transmission Date: 20191005
  Serious: Yes (Hospitalization)
  Sender: FDA-Public Use
  Company Number: HU-UCBSA-030167

PATIENT
  Age: 42 Year
  Sex: Male
  Weight: 73.2 kg

DRUGS (5)
  1. METHOTREXATE. [Concomitant]
     Active Substance: METHOTREXATE
     Indication: PSORIATIC ARTHROPATHY
     Dosage: 15 MG, WEEKLY (QW)
     Route: 048
     Dates: start: 2004
  2. MELOXICAM. [Concomitant]
     Active Substance: MELOXICAM
     Indication: PSORIATIC ARTHROPATHY
     Dosage: 15 MG, ONCE DAILY (QD)
     Route: 048
     Dates: start: 20101010
  3. CERTOLIZUMAB PEGOL VS PLACEBO [Suspect]
     Active Substance: CERTOLIZUMAB PEGOL
     Indication: PSORIATIC ARTHROPATHY
     Dosage: 200 MILLIGRAM
     Route: 058
     Dates: end: 20110308
  4. TRAMADOL. [Concomitant]
     Active Substance: TRAMADOL
     Indication: PAIN
     Dosage: 100 MG, ONCE DAILY (QD)
     Route: 048
     Dates: start: 20101010
  5. FOLIC ACID. [Concomitant]
     Active Substance: FOLIC ACID
     Indication: PROPHYLAXIS
     Dosage: 3 MG, 2X/WEEK
     Route: 048
     Dates: start: 2004

REACTIONS (2)
  - Pneumonia [Recovered/Resolved]
  - Pleurisy [Recovered/Resolved]

NARRATIVE: CASE EVENT DATE: 20110309
